FAERS Safety Report 11934585 (Version 1)
Quarter: 2016Q1

REPORT INFORMATION
  Report Type: Spontaneous
  Country: US (occurrence: None)
  Receive Date: 20160120
  Receipt Date: 20160120
  Transmission Date: 20160526
  Serious: No
  Sender: FDA-Public Use
  Company Number: None

PATIENT
  Age: 58 Year
  Sex: Female

DRUGS (1)
  1. HUMIRA [Suspect]
     Active Substance: ADALIMUMAB
     Indication: RHEUMATOID ARTHRITIS
     Dosage: EVERY 2 WEEKS
     Route: 058
     Dates: start: 20151101, end: 20151211

REACTIONS (6)
  - Diarrhoea [None]
  - Headache [None]
  - Hepatitis toxic [None]
  - Abdominal pain upper [None]
  - Nausea [None]
  - Early satiety [None]

NARRATIVE: CASE EVENT DATE: 20151211
